FAERS Safety Report 12970184 (Version 2)
Quarter: 2017Q1

REPORT INFORMATION
  Report Type: Report from Study
  Country: JP (occurrence: JP)
  Receive Date: 20161123
  Receipt Date: 20170123
  Transmission Date: 20170428
  Serious: Yes (Death, Hospitalization)
  Sender: FDA-Public Use
  Company Number: JP-ASTRAZENECA-2016SF24481

PATIENT
  Age: 42 Year
  Sex: Female
  Weight: 50 kg

DRUGS (5)
  1. PREDONINE [Concomitant]
     Active Substance: PREDNISOLONE
     Dosage: 25.0MG UNKNOWN
     Route: 048
     Dates: start: 20161006, end: 20161006
  2. TAGRISSO [Suspect]
     Active Substance: OSIMERTINIB
     Indication: NON-SMALL CELL LUNG CANCER
     Route: 048
     Dates: start: 20160823, end: 20160929
  3. LEVOFLOXACIN HEMIHYDRATE [Concomitant]
     Active Substance: LEVOFLOXACIN
     Indication: PNEUMONIA
     Dosage: 500.0MG UNKNOWN
     Route: 048
     Dates: start: 20160929, end: 20161003
  4. METHYLPREDNISOLONE. [Concomitant]
     Active Substance: METHYLPREDNISOLONE
     Dosage: 1000.0MG UNKNOWN
     Route: 048
     Dates: start: 20161003, end: 20161005
  5. ZOSYN [Concomitant]
     Active Substance: PIPERACILLIN SODIUM\TAZOBACTAM SODIUM
     Indication: PNEUMONIA
     Dosage: 18.0G UNKNOWN
     Route: 048
     Dates: start: 20161003, end: 20161007

REACTIONS (3)
  - Pneumonia [Fatal]
  - Lung abscess [Fatal]
  - Lung disorder [Fatal]

NARRATIVE: CASE EVENT DATE: 20160929
